FAERS Safety Report 7169098 (Version 2)
Quarter: 2014Q3

REPORT INFORMATION
  Report Type: Report from Study
  Country: US (occurrence: US)
  Receive Date: 20091106
  Receipt Date: 20140701
  Transmission Date: 20150326
  Serious: Yes (Hospitalization)
  Sender: FDA-Public Use
  Company Number: US-ELI_LILLY_AND_COMPANY-US200910007645

PATIENT
  Age: 25 Year
  Sex: Female

DRUGS (9)
  1. SOMATROPIN [Suspect]
     Active Substance: SOMATROPIN
     Indication: HYPOPITUITARISM
     Dosage: 3.2 MG, QD
     Route: 065
     Dates: start: 2003, end: 201403
  2. DESMOPRESSIN [Concomitant]
     Active Substance: DESMOPRESSIN
     Dosage: UNK, UNKNOWN
     Route: 065
  3. SYNTHROID [Concomitant]
     Active Substance: LEVOTHYROXINE SODIUM
     Dosage: UNK, UNKNOWN
     Route: 065
  4. ADDERALL [Concomitant]
     Active Substance: AMPHETAMINE ASPARTATE\AMPHETAMINE SULFATE\DEXTROAMPHETAMINE SACCHARATE\DEXTROAMPHETAMINE SULFATE
     Dosage: UNK, UNKNOWN
     Route: 065
  5. ALTACE [Concomitant]
     Active Substance: RAMIPRIL
     Dosage: UNK, UNKNOWN
     Route: 065
  6. YAZ [Concomitant]
     Active Substance: DROSPIRENONE\ETHINYL ESTRADIOL
     Dosage: UNK, UNKNOWN
     Route: 065
  7. CRESTOR [Concomitant]
     Active Substance: ROSUVASTATIN CALCIUM
     Dosage: UNK, UNKNOWN
     Route: 065
  8. LEXAPRO [Concomitant]
     Active Substance: ESCITALOPRAM OXALATE
     Dosage: UNK, UNKNOWN
     Route: 065
  9. CORTEF [Concomitant]
     Active Substance: HYDROCORTISONE
     Dosage: UNK, UNKNOWN
     Route: 065

REACTIONS (5)
  - Hypersomnia [Unknown]
  - Depression [Not Recovered/Not Resolved]
  - Depression [Unknown]
  - Fatigue [Unknown]
  - Drug withdrawal syndrome [Unknown]

NARRATIVE: CASE EVENT DATE: 20091022
